FAERS Safety Report 14999028 (Version 1)
Quarter: 2018Q2

REPORT INFORMATION
  Report Type: Report from Study
  Country: IT (occurrence: IT)
  Receive Date: 20180612
  Receipt Date: 20180612
  Transmission Date: 20180711
  Serious: Yes (Hospitalization)
  Sender: FDA-Public Use
  Company Number: IT-TEVA-2018-IT-904234

PATIENT
  Age: 68 Year
  Sex: Female

DRUGS (11)
  1. TORASEMIDE [Interacting]
     Active Substance: TORSEMIDE
     Route: 065
  2. TRIVALENT, INACTIVATED SUBUNIT INFLUENZA VIRUS VACCINE [Interacting]
     Active Substance: INFLUENZA VIRUS VACCINE TRIVALENT TYPE A+B
     Indication: IMMUNISATION
     Route: 065
  3. WARFARIN [Interacting]
     Active Substance: WARFARIN
     Indication: ANTICOAGULANT THERAPY
     Route: 065
  4. HERPES ZOSTER VACCINE [Concomitant]
     Active Substance: VARICELLA-ZOSTER VIRUS STRAIN OKA/MERCK LIVE ANTIGEN
     Route: 065
  5. LISINOPRIL. [Concomitant]
     Active Substance: LISINOPRIL
     Route: 065
  6. GLIPIZIDE. [Interacting]
     Active Substance: GLIPIZIDE
     Route: 065
  7. INSULIN [Concomitant]
     Active Substance: INSULIN NOS
     Route: 065
  8. ROSUVASTATIN. [Suspect]
     Active Substance: ROSUVASTATIN
     Route: 065
  9. PREGABALIN. [Concomitant]
     Active Substance: PREGABALIN
     Route: 065
  10. CLONIDINE. [Concomitant]
     Active Substance: CLONIDINE
     Route: 065
  11. AMLODIPINE [Concomitant]
     Active Substance: AMLODIPINE BESYLATE
     Route: 065

REACTIONS (9)
  - Blood pressure increased [Unknown]
  - Hypoacusis [Unknown]
  - Spinal pain [Unknown]
  - Drug interaction [Unknown]
  - Haemorrhage intracranial [Unknown]
  - Parosmia [Unknown]
  - Dehydration [Unknown]
  - Headache [Unknown]
  - Photosensitivity reaction [Unknown]
